FAERS Safety Report 5199511-3 (Version None)
Quarter: 2006Q4

REPORT INFORMATION
  Report Type: 
  Country: None (occurrence: None)
  Receive Date: 20061229
  Receipt Date: 20061221
  Transmission Date: 20070319
  Serious: Yes (Death, Other)
  Sender: FDA-Public Use
  Company Number: 009-C5013-06121044

PATIENT
  Age: 67 Year
  Sex: Male
  Weight: 74 kg

DRUGS (6)
  1. CC-5013 (LENALIDOMIDE) (CAPSULES) [Suspect]
     Indication: MULTIPLE MYELOMA
     Dosage: 25 MG, ORAL
     Route: 048
     Dates: start: 20061127, end: 20061211
  2. DARBEPOETIN ALFA (DARBEPOETIN ALFA) [Concomitant]
  3. TRAMADOL HCL [Concomitant]
  4. VALTREX [Concomitant]
  5. NEURONTIN [Concomitant]
  6. ACETYLSALICYLIC ACID SRT [Concomitant]

REACTIONS (9)
  - ALANINE AMINOTRANSFERASE INCREASED [None]
  - CHEST PAIN [None]
  - DISEASE PROGRESSION [None]
  - FATIGUE [None]
  - FEBRILE NEUTROPENIA [None]
  - GAMMA-GLUTAMYLTRANSFERASE INCREASED [None]
  - HEPATIC ENZYME INCREASED [None]
  - HERPES ZOSTER [None]
  - NEUROPATHY [None]
